FAERS Safety Report 14778862 (Version 1)
Quarter: 2018Q2

REPORT INFORMATION
  Report Type: Spontaneous
  Country: US (occurrence: US)
  Receive Date: 20180412
  Receipt Date: 20180412
  Transmission Date: 20180711
  Serious: Yes (Other)
  Sender: FDA-Public Use
  Company Number: None

PATIENT
  Age: 76 Year
  Sex: Female
  Weight: 66.6 kg

DRUGS (5)
  1. ZOLEDRONIC ACID, 1 MG [Suspect]
     Active Substance: ZOLEDRONIC ACID
     Indication: OSTEOPOROSIS
     Route: 042
     Dates: start: 20171214
  2. PRAVASTATIN. [Concomitant]
     Active Substance: PRAVASTATIN
  3. MAGNESIUM [Concomitant]
     Active Substance: MAGNESIUM
  4. CALCIUM [Concomitant]
     Active Substance: CALCIUM
  5. VITAMIN D3 [Concomitant]
     Active Substance: CHOLECALCIFEROL

REACTIONS (6)
  - Infusion related reaction [None]
  - Dysgeusia [None]
  - Influenza [None]
  - Skin odour abnormal [None]
  - Chills [None]
  - Musculoskeletal stiffness [None]

NARRATIVE: CASE EVENT DATE: 20180124
